FAERS Safety Report 24285869 (Version 1)
Quarter: 2024Q3

REPORT INFORMATION
  Report Type: Spontaneous
  Country: PH (occurrence: PH)
  Receive Date: 20240905
  Receipt Date: 20240905
  Transmission Date: 20241017
  Serious: Yes (Death)
  Sender: BOEHRINGER INGELHEIM
  Company Number: PH-BoehringerIngelheim-2024-BI-049463

PATIENT
  Age: 72 Year
  Sex: Male

DRUGS (1)
  1. OFEV [Suspect]
     Active Substance: NINTEDANIB
     Indication: Interstitial lung disease
     Dosage: 1 CAPSULE TWICE A DAY
     Route: 048
     Dates: start: 202309, end: 20240817

REACTIONS (11)
  - Acute myocardial infarction [Fatal]
  - Coronary artery disease [Fatal]
  - Pulmonary hypertension [Fatal]
  - Respiratory failure [Fatal]
  - Diarrhoea [Unknown]
  - Decreased appetite [Unknown]
  - Ageusia [Unknown]
  - Oxygen consumption increased [Unknown]
  - Cough [Unknown]
  - Drug ineffective [Unknown]
  - Chest pain [Unknown]

NARRATIVE: CASE EVENT DATE: 20240818
